FAERS Safety Report 13345737 (Version 3)
Quarter: 2021Q3

REPORT INFORMATION
  Report Type: Report from Study
  Country: DE (occurrence: DE)
  Receive Date: 20170317
  Receipt Date: 20210715
  Transmission Date: 20211014
  Serious: Yes (Other)
  Sender: FDA-Public Use
  Company Number: DE-BIOGEN-2017BI00372069

PATIENT
  Age: 31 Year
  Sex: Female
  Weight: 50 kg

DRUGS (4)
  1. IRON [Concomitant]
     Active Substance: IRON
     Indication: PREGNANCY
     Route: 065
     Dates: start: 201512
  2. AVONEX [Suspect]
     Active Substance: INTERFERON BETA-1A
     Route: 030
     Dates: start: 20170120
  3. AVONEX [Suspect]
     Active Substance: INTERFERON BETA-1A
     Indication: MULTIPLE SCLEROSIS
     Route: 030
     Dates: start: 20120901
  4. FEMIBION [Concomitant]
     Indication: PREGNANCY
     Route: 065
     Dates: start: 2015, end: 201601

REACTIONS (2)
  - Caesarean section [Recovered/Resolved]
  - Maternal exposure during pregnancy [Recovered/Resolved]

NARRATIVE: CASE EVENT DATE: 20160308
